FAERS Safety Report 18993112 (Version 1)
Quarter: 2021Q1

REPORT INFORMATION
  Report Type: Spontaneous
  Country: FR (occurrence: FR)
  Receive Date: 20210310
  Receipt Date: 20210310
  Transmission Date: 20210420
  Serious: Yes (Other)
  Sender: FDA-Public Use
  Company Number: FR-GLAXOSMITHKLINE-FR2021056720

PATIENT
  Age: 27 Year
  Sex: Male
  Weight: 79 kg

DRUGS (2)
  1. URBANYL [Suspect]
     Active Substance: CLOBAZAM
     Indication: EPILEPSY
     Dosage: UNK
     Route: 048
  2. LAMICTAL [Suspect]
     Active Substance: LAMOTRIGINE
     Indication: EPILEPSY
     Dosage: 375 MG, QD
     Route: 048

REACTIONS (4)
  - Rash [Not Recovered/Not Resolved]
  - Insomnia [Not Recovered/Not Resolved]
  - Seizure [Not Recovered/Not Resolved]
  - Feeling abnormal [Not Recovered/Not Resolved]

NARRATIVE: CASE EVENT DATE: 20210120
